FAERS Safety Report 5030474-7 (Version None)
Quarter: 2006Q2

REPORT INFORMATION
  Report Type: 
  Country: None (occurrence: None)
  Receive Date: 20060620
  Receipt Date: 20060613
  Transmission Date: 20061013
  Serious: Yes (Disabling)
  Sender: FDA-Public Use
  Company Number: FR-BOEHRINGER INGELHEIM PHARMACEUTICALS, INC.-2006-FF-00461FF

PATIENT
  Age: 43 Year
  Sex: Female

DRUGS (4)
  1. VIRAMUNE [Suspect]
     Indication: ACQUIRED IMMUNODEFICIENCY SYNDROME
     Route: 048
     Dates: start: 20000115
  2. VIDEX [Concomitant]
     Route: 048
     Dates: start: 20010915, end: 20060515
  3. APROVEL [Concomitant]
     Route: 048
     Dates: start: 20040615, end: 20060315
  4. EPIVIR [Concomitant]
     Indication: ACQUIRED IMMUNODEFICIENCY SYNDROME
     Route: 048
     Dates: start: 20000115

REACTIONS (2)
  - CHOLANGITIS [None]
  - PORTAL HYPERTENSION [None]
